APPROVED DRUG PRODUCT: PRESTALIA
Active Ingredient: AMLODIPINE BESYLATE; PERINDOPRIL ARGININE
Strength: EQ 5MG BASE;7MG
Dosage Form/Route: TABLET;ORAL
Application: N205003 | Product #002
Applicant: ADHERA THERAPEUTICS INC
Approved: Jan 21, 2015 | RLD: Yes | RS: No | Type: DISCN

PATENTS:
Patent 7846961 | Expires: Oct 5, 2029